FAERS Safety Report 9207627 (Version 1)
Quarter: 2013Q2

REPORT INFORMATION
  Report Type: Spontaneous
  Country: US (occurrence: None)
  Receive Date: 20130402
  Receipt Date: 20130402
  Transmission Date: 20140414
  Serious: Yes (Hospitalization, Disabling)
  Sender: FDA-Public Use
  Company Number: None

PATIENT
  Sex: Male

DRUGS (9)
  1. HUMIRA [Suspect]
     Indication: CROHN^S DISEASE
     Route: 058
  2. HUMIRA [Suspect]
     Indication: ARTHRITIS
     Route: 058
  3. PREDNISONE [Suspect]
     Indication: CROHN^S DISEASE
     Dosage: NO EXACT DOSE GIVEN?, STOPPING 1YR AGO
  4. HUMIRA PENS [Concomitant]
  5. IMURAN [Concomitant]
  6. OSTEO BIFLEX [Concomitant]
  7. VITAMIN D [Concomitant]
  8. MULTIVIT [Concomitant]
  9. VITAMIN E [Concomitant]

REACTIONS (1)
  - Osteonecrosis [None]
